FAERS Safety Report 6115569-9 (Version None)
Quarter: 2009Q1

REPORT INFORMATION
  Report Type: 
  Country: None (occurrence: None)
  Receive Date: 20090313
  Receipt Date: 20090303
  Transmission Date: 20090719
  Serious: Yes (Other)
  Sender: FDA-Public Use
  Company Number: PHHY2009CL07114

PATIENT
  Sex: Male

DRUGS (2)
  1. LEPONEX [Suspect]
     Indication: BIPOLAR I DISORDER
     Dosage: UNK
     Route: 048
     Dates: start: 20081001
  2. KETOPROFEN [Concomitant]

REACTIONS (7)
  - BRONCHOPNEUMONIA [None]
  - CONDITION AGGRAVATED [None]
  - DIALYSIS [None]
  - DISCOMFORT [None]
  - MULTI-ORGAN FAILURE [None]
  - PYREXIA [None]
  - RENAL FAILURE [None]
